FAERS Safety Report 22159720 (Version 1)
Quarter: 2023Q1

REPORT INFORMATION
  Report Type: Spontaneous
  Country: DE (occurrence: DE)
  Receive Date: 20230331
  Receipt Date: 20230331
  Transmission Date: 20230418
  Serious: Yes (Other)
  Sender: FDA-Public Use
  Company Number: DE-TEVA-2023-DE-2853711

PATIENT
  Age: 42 Year
  Sex: Female

DRUGS (5)
  1. MONTELUKAST SODIUM [Suspect]
     Active Substance: MONTELUKAST SODIUM
     Indication: Product used for unknown indication
     Dosage: UNK
     Route: 065
  2. LORATADINE [Suspect]
     Active Substance: LORATADINE
     Indication: Product used for unknown indication
     Dosage: UNK
     Route: 065
  3. CETIRIZINE HYDROCHLORIDE [Suspect]
     Active Substance: CETIRIZINE HYDROCHLORIDE
     Indication: Urticaria
     Dosage: UNK UNK, QD
     Route: 065
     Dates: start: 2017
  4. CETIRIZINE HYDROCHLORIDE [Suspect]
     Active Substance: CETIRIZINE HYDROCHLORIDE
     Dosage: 20 DROPS INITIALLY AND REDUCED TO 6 DROPS
     Route: 065
  5. CETIRIZINE HYDROCHLORIDE [Suspect]
     Active Substance: CETIRIZINE HYDROCHLORIDE
     Dosage: 10 MILLIGRAM DAILY;
     Route: 065
     Dates: start: 201801

REACTIONS (14)
  - Caesarean section [Unknown]
  - Uterine rupture [Unknown]
  - Depression [Unknown]
  - Disturbance in attention [Unknown]
  - Maternal exposure during pregnancy [Unknown]
  - Fatigue [Unknown]
  - Urticaria [Recovering/Resolving]
  - Irritability [Unknown]
  - Maternal exposure during breast feeding [Unknown]
  - Live birth [Unknown]
  - Transverse presentation [Unknown]
  - Erythema [Recovering/Resolving]
  - Drug ineffective [Unknown]
  - Anxiety [Unknown]

NARRATIVE: CASE EVENT DATE: 20190430
